FAERS Safety Report 10508940 (Version 1)
Quarter: 2014Q4

REPORT INFORMATION
  Report Type: Other
  Country: NL (occurrence: NL)
  Receive Date: 20141009
  Receipt Date: 20141009
  Transmission Date: 20150528
  Serious: Yes (Other)
  Sender: FDA-Public Use
  Company Number: NL-ENDO PHARMACEUTICALS INC-PNIS20140004

PATIENT
  Age: 9 Month
  Sex: Female

DRUGS (5)
  1. PREDNISOLONE ORAL SOLUTION [Suspect]
     Active Substance: PREDNISOLONE
     Indication: NEONATAL RESPIRATORY DISTRESS SYNDROME
     Dosage: UNKNOWN
     Route: 048
  2. METHYLPREDNISOLONE. [Suspect]
     Active Substance: METHYLPREDNISOLONE
     Indication: NEONATAL RESPIRATORY DISTRESS SYNDROME
     Dosage: UNKNOWN
     Route: 042
  3. PREDNISOLONE ORAL SOLUTION [Suspect]
     Active Substance: PREDNISOLONE
     Dosage: UNKNOWN
     Route: 048
  4. METHYLPREDNISOLONE. [Suspect]
     Active Substance: METHYLPREDNISOLONE
     Dosage: UNKNOWN
     Route: 042
  5. METHYLPREDNISOLONE. [Suspect]
     Active Substance: METHYLPREDNISOLONE
     Dosage: UNKNOWN
     Route: 042

REACTIONS (2)
  - Cerebral disorder [Recovered/Resolved]
  - Neurodevelopmental disorder [Recovered/Resolved]
